FAERS Safety Report 9240004 (Version 1)
Quarter: 2013Q2

REPORT INFORMATION
  Report Type: Spontaneous
  Country: JP (occurrence: JP)
  Receive Date: 20130418
  Receipt Date: 20130418
  Transmission Date: 20140414
  Serious: Yes (Hospitalization)
  Sender: FDA-Public Use
  Company Number: JP-GLAXOSMITHKLINE-B0883285A

PATIENT
  Age: 62 Year
  Sex: Female

DRUGS (7)
  1. PAXIL [Suspect]
     Route: 048
  2. PAXIL [Suspect]
     Dosage: 40MG PER DAY
     Route: 048
  3. PEGINTRON [Concomitant]
     Route: 058
  4. PEGINTRON [Concomitant]
     Route: 058
  5. REBETOL [Concomitant]
     Route: 048
  6. SULPIRIDE [Concomitant]
     Route: 065
  7. ETIZOLAM [Concomitant]
     Route: 048

REACTIONS (3)
  - Interstitial lung disease [Unknown]
  - Increased appetite [Unknown]
  - Weight increased [Unknown]
